FAERS Safety Report 5896081-9 (Version None)
Quarter: 2008Q3

REPORT INFORMATION
  Report Type: 
  Country: None (occurrence: None)
  Receive Date: 20080827
  Receipt Date: 20080516
  Transmission Date: 20090109
  Serious: Yes (Hospitalization)
  Sender: FDA-Public Use
  Company Number: PHEH2008US04627

PATIENT
  Age: 82 Year
  Sex: Female

DRUGS (2)
  1. RECLAST [Suspect]
     Indication: OSTEOPOROSIS
     Dosage: 5 MG, ONCE/SINGLE, INTRAVENOUS
     Route: 042
     Dates: start: 20080307
  2. CALCIUM W/VITAMIN D NOS (CALCIUM, VITAMIN D NOS) [Concomitant]

REACTIONS (1)
  - ATRIAL FIBRILLATION [None]
